FAERS Safety Report 15881913 (Version 4)
Quarter: 2019Q1

REPORT INFORMATION
  Report Type: Spontaneous
  Country: IN (occurrence: IN)
  Receive Date: 20190128
  Receipt Date: 20190329
  Transmission Date: 20190417
  Serious: Yes (Death, Other)
  Sender: FDA-Public Use
  Company Number: IN-PFIZER INC-2019031989

PATIENT
  Age: 64 Year
  Sex: Male

DRUGS (3)
  1. CAMPTO [Suspect]
     Active Substance: IRINOTECAN
     Indication: RECTAL CANCER METASTATIC
     Dosage: 290 MG, UNK
     Route: 042
  2. CAMPTO [Suspect]
     Active Substance: IRINOTECAN
     Dosage: 280 MG, UNK
     Route: 042
  3. CAMPTO [Suspect]
     Active Substance: IRINOTECAN
     Indication: COLON CANCER METASTATIC
     Dosage: 300 MG, UNK
     Route: 042
     Dates: start: 20190115

REACTIONS (7)
  - Nausea [Unknown]
  - Death [Fatal]
  - Back pain [Recovering/Resolving]
  - Weight decreased [Unknown]
  - Lack of spontaneous speech [Unknown]
  - Diarrhoea [Unknown]
  - Decreased appetite [Unknown]

NARRATIVE: CASE EVENT DATE: 2019
